FAERS Safety Report 7906112-X (Version None)
Quarter: 2011Q4

REPORT INFORMATION
  Report Type: 
  Country: None (occurrence: None)
  Receive Date: 20111110
  Receipt Date: 20111103
  Transmission Date: 20120403
  Serious: Yes (Other)
  Sender: FDA-Public Use
  Company Number: US-AMGEN-USASP2011057674

PATIENT
  Sex: Female

DRUGS (2)
  1. ENBREL [Suspect]
     Indication: RHEUMATOID ARTHRITIS
     Dosage: 50 MG, UNK
     Dates: start: 20080101
  2. METHOTREXATE [Concomitant]
     Dosage: 5 MG, QWK
     Dates: start: 20080101

REACTIONS (4)
  - FIBROMYALGIA [None]
  - VISUAL IMPAIRMENT [None]
  - EYE PAIN [None]
  - MIGRAINE [None]
